FAERS Safety Report 4999139-1 (Version None)
Quarter: 2006Q2

REPORT INFORMATION
  Report Type: 
  Country: None (occurrence: None)
  Receive Date: 20060509
  Receipt Date: 20060421
  Transmission Date: 20061013
  Serious: Yes (Hospitalization)
  Sender: FDA-Public Use
  Company Number: US200604002038

PATIENT
  Age: 58 Year
  Sex: Female

DRUGS (25)
  1. CYMBALTA [Suspect]
     Indication: NEUROPATHY PERIPHERAL
  2. KLOR-CON [Concomitant]
  3. AMBIEN [Concomitant]
  4. ATENOLOL [Concomitant]
  5. DIOVAN [Concomitant]
  6. LEVOTHYROXINE SODIUM [Concomitant]
  7. GABAPENTIN [Concomitant]
  8. GEMFIBROZIL [Concomitant]
  9. PREMARIN [Concomitant]
  10. LASIX [Concomitant]
  11. NEURONTIN [Concomitant]
  12. MORPHINE SULFATE [Concomitant]
  13. PHENERGAN (PROMETHAZINE HYDROCHLORIDE) [Concomitant]
  14. DURAGESIC-100 [Concomitant]
  15. DIFLUCAN [Concomitant]
  16. ATENOLOL W/CHLORTALIDONE (ATENOLOL, CHLORTALIDONE) [Concomitant]
  17. XANAX /USA/ (ALPRAZOLAM) [Concomitant]
  18. PROTONIX [Concomitant]
  19. MYCOSTATIN /NEZ/ (NYSTATIN) [Concomitant]
  20. MORPHINE SULFATE [Concomitant]
  21. CHLORASEPTIC SORE THROAT SPRAY (PHENOL) [Concomitant]
  22. XOPENEX [Concomitant]
  23. ALBUTEROL [Concomitant]
  24. TYLENOL /USA/ (PARACETAMOL) [Concomitant]
  25. DARVOCET-N 100 [Concomitant]

REACTIONS (20)
  - ANAEMIA [None]
  - ANXIETY [None]
  - BALANCE DISORDER [None]
  - CEREBROVASCULAR ACCIDENT [None]
  - DIZZINESS [None]
  - GASTRIC ULCER [None]
  - GASTRITIS [None]
  - HEADACHE [None]
  - HYPOTENSION [None]
  - MALAISE [None]
  - NAUSEA [None]
  - NERVE INJURY [None]
  - OCCULT BLOOD POSITIVE [None]
  - PYREXIA [None]
  - RENAL FAILURE ACUTE [None]
  - RESPIRATORY ACIDOSIS [None]
  - RESPIRATORY FAILURE [None]
  - RHABDOMYOLYSIS [None]
  - VISUAL DISTURBANCE [None]
  - VOMITING [None]
